FAERS Safety Report 5422983-3 (Version None)
Quarter: 2007Q3

REPORT INFORMATION
  Report Type: 
  Country: None (occurrence: None)
  Receive Date: 20070820
  Receipt Date: 20070803
  Transmission Date: 20080115
  Serious: Yes (Life-Threatening, Hospitalization, Other)
  Sender: FDA-Public Use
  Company Number: S07-FRA-03166-01

PATIENT
  Age: 87 Year
  Sex: Female

DRUGS (4)
  1. EBIXA (MEMANTINE HYDROCHLORIDE) [Suspect]
     Indication: DEMENTIA ALZHEIMER'S TYPE
     Dosage: 10 MG BID PO
     Route: 048
     Dates: start: 20070507, end: 20070628
  2. GALANTAMINE HYDROBROMIDE [Suspect]
     Indication: DEMENTIA ALZHEIMER'S TYPE
     Dosage: 24 MG QD PO
     Route: 048
     Dates: start: 20050302, end: 20070628
  3. SECTRAL [Suspect]
     Dosage: 200 MG QD PO
     Route: 048
     Dates: end: 20070628
  4. ATHYMIL (MIASERIN HYDROCHLORIDE) [Concomitant]

REACTIONS (9)
  - ANOREXIA [None]
  - ARRHYTHMIA [None]
  - ATRIAL FIBRILLATION [None]
  - ATRIOVENTRICULAR BLOCK COMPLETE [None]
  - BRADYCARDIA [None]
  - DISORIENTATION [None]
  - SKIN DISCOLOURATION [None]
  - SOMNOLENCE [None]
  - VENTRICULAR EXTRASYSTOLES [None]
